FAERS Safety Report 6189092-X (Version None)
Quarter: 2009Q2

REPORT INFORMATION
  Report Type: 
  Country: None (occurrence: None)
  Receive Date: 20090513
  Receipt Date: 20090409
  Transmission Date: 20091009
  Serious: No
  Sender: FDA-Public Use
  Company Number: US-BAYER-200911181BCC

PATIENT
  Sex: Female
  Weight: 72 kg

DRUGS (3)
  1. ALEVE [Suspect]
     Indication: ARTHRALGIA
     Dosage: TOTAL DAILY DOSE: 880 MG  UNIT DOSE: 220 MG
     Route: 048
     Dates: start: 20090301, end: 20090301
  2. ELEMENTS [Concomitant]
     Indication: DRUG USE FOR UNKNOWN INDICATION
     Route: 065
  3. CLARITIN-D [Concomitant]
     Indication: SEASONAL ALLERGY
     Route: 065

REACTIONS (1)
  - ABDOMINAL DISCOMFORT [None]
